FAERS Safety Report 11130606 (Version 1)
Quarter: 2015Q2

REPORT INFORMATION
  Report Type: Spontaneous
  Country: IN (occurrence: None)
  Receive Date: 20150521
  Receipt Date: 20150521
  Transmission Date: 20150821
  Serious: Yes (Life-Threatening, Hospitalization)
  Sender: FDA-Public Use
  Company Number: None

PATIENT
  Age: 27 Year
  Sex: Male
  Weight: 69 kg

DRUGS (3)
  1. IBUGESIC PLUS [Suspect]
     Active Substance: ACETAMINOPHEN\IBUPROFEN
     Indication: PHARYNGITIS
     Route: 048
  2. IBUGESIC PLUS [Suspect]
     Active Substance: ACETAMINOPHEN\IBUPROFEN
     Indication: PYREXIA
     Route: 048
  3. AZITHROMYCIN [Suspect]
     Active Substance: AZITHROMYCIN ANHYDROUS

REACTIONS (3)
  - Pharyngitis [None]
  - Pyrexia [None]
  - Pancreatitis acute [None]

NARRATIVE: CASE EVENT DATE: 20111203
